FAERS Safety Report 6661586-X (Version None)
Quarter: 2010Q1

REPORT INFORMATION
  Report Type: 
  Country: None (occurrence: None)
  Receive Date: 20100331
  Receipt Date: 20090402
  Transmission Date: 20100710
  Serious: No
  Sender: FDA-Public Use
  Company Number: US-BRISTOL-MYERS SQUIBB COMPANY-14472005

PATIENT
  Age: 74 Year
  Sex: Male

DRUGS (2)
  1. ERBITUX [Suspect]
     Indication: HEAD AND NECK CANCER
     Dosage: THERAPY: 17NOV08 400MG/M2 AS LOADING DOSE AND 250 MG/M2 AS WEEKLY DOSE. RECENT INFUSION ON 3JAN09
     Route: 042
     Dates: start: 20081117, end: 20081117
  2. RADIATION THERAPY [Suspect]
     Indication: HEAD AND NECK CANCER
     Dosage: 1DF=7200GY
     Dates: start: 20081124, end: 20090107

REACTIONS (1)
  - MUCOSAL INFLAMMATION [None]
